FAERS Safety Report 13926561 (Version 1)
Quarter: 2017Q3

REPORT INFORMATION
  Report Type: Spontaneous
  Country: US (occurrence: None)
  Receive Date: 20170831
  Receipt Date: 20170831
  Transmission Date: 20171127
  Serious: Yes (Other)
  Sender: FDA-Public Use
  Company Number: None

PATIENT
  Age: 54 Year
  Sex: Female
  Weight: 72.58 kg

DRUGS (1)
  1. FEXOFENADINE/PSEUDOEPHEDRINE GENERIC ALLEGRA-D [Suspect]
     Active Substance: FEXOFENADINE HYDROCHLORIDE\PSEUDOEPHEDRINE HYDROCHLORIDE
     Indication: RHINITIS ALLERGIC
     Dosage: 60/120 MG ONE TAB BID PO
     Route: 048
     Dates: start: 2013

REACTIONS (5)
  - Product substitution issue [None]
  - Vomiting [None]
  - Drug ineffective [None]
  - Nausea [None]
  - Abdominal pain [None]
